FAERS Safety Report 11897789 (Version 3)
Quarter: 2016Q1

REPORT INFORMATION
  Report Type: Report from Study
  Country: US (occurrence: US)
  Receive Date: 20160108
  Receipt Date: 20160317
  Transmission Date: 20160526
  Serious: No
  Sender: FDA-Public Use
  Company Number: US-AMGEN-USASP2016000443

PATIENT
  Age: 61 Year
  Sex: Female

DRUGS (1)
  1. ENBREL [Suspect]
     Active Substance: ETANERCEPT
     Indication: RHEUMATOID ARTHRITIS
     Dosage: 50 MG, QWK
     Route: 065
     Dates: start: 201511

REACTIONS (11)
  - Injection site pruritus [Unknown]
  - Injection site discolouration [Not Recovered/Not Resolved]
  - Injection site reaction [Unknown]
  - Injection site erythema [Unknown]
  - Skin reaction [Not Recovered/Not Resolved]
  - Feeling hot [Not Recovered/Not Resolved]
  - Adverse drug reaction [Unknown]
  - Hiccups [Unknown]
  - Drug hypersensitivity [Unknown]
  - Erythema [Unknown]
  - Injection site swelling [Unknown]

NARRATIVE: CASE EVENT DATE: 201512
